FAERS Safety Report 6201018-9 (Version None)
Quarter: 2009Q2

REPORT INFORMATION
  Report Type: 
  Country: None (occurrence: None)
  Receive Date: 20090526
  Receipt Date: 20090519
  Transmission Date: 20091009
  Serious: Yes (Other)
  Sender: FDA-Public Use
  Company Number: GB-TEVA-195507ISR

PATIENT
  Age: 43 Year
  Sex: Male

DRUGS (1)
  1. CITALOPRAM HYDROBROMIDE [Suspect]
     Indication: DEPRESSION
     Route: 048
     Dates: start: 20090323, end: 20090414

REACTIONS (1)
  - PHOTOPSIA [None]
